FAERS Safety Report 20503501 (Version 1)
Quarter: 2022Q1

REPORT INFORMATION
  Report Type: Spontaneous
  Country: US (occurrence: None)
  Receive Date: 20220220
  Receipt Date: 20220220
  Transmission Date: 20220423
  Serious: Yes (Hospitalization)
  Sender: FDA-Public Use
  Company Number: None

PATIENT
  Sex: Male

DRUGS (15)
  1. AVASTIN [Suspect]
     Active Substance: BEVACIZUMAB
  2. ONDANSETRON [Suspect]
     Active Substance: ONDANSETRON
  3. dexamethasone 10mg/ml vial [Concomitant]
  4. DiphenhydrAMINE 50 mg/mL Vial [Concomitant]
  5. COREG [Concomitant]
     Active Substance: CARVEDILOL
  6. VITAMINS [Concomitant]
     Active Substance: VITAMINS
  7. DEXAMETHASONE [Concomitant]
     Active Substance: DEXAMETHASONE
  8. FENOFIBRATE [Concomitant]
     Active Substance: FENOFIBRATE
  9. HUMALOG [Concomitant]
     Active Substance: INSULIN LISPRO
  10. LANTUS [Concomitant]
     Active Substance: INSULIN GLARGINE
  11. MEGESTROL [Concomitant]
     Active Substance: MEGESTROL
  12. MUPIROCIN [Concomitant]
     Active Substance: MUPIROCIN
  13. PHENAZOPYRIDINE [Concomitant]
     Active Substance: PHENAZOPYRIDINE
  14. TAMSULOSIN [Concomitant]
     Active Substance: TAMSULOSIN
  15. TOUJEO [Concomitant]
     Active Substance: INSULIN GLARGINE

REACTIONS (1)
  - Hospitalisation [None]
